FAERS Safety Report 9166000 (Version 2)
Quarter: 2013Q1

REPORT INFORMATION
  Report Type: Spontaneous
  Country: US (occurrence: US)
  Receive Date: 20130315
  Receipt Date: 20130325
  Transmission Date: 20140127
  Serious: Yes (Hospitalization, Disabling, Other)
  Sender: FDA-Public Use
  Company Number: US-009507513-2012SP007964

PATIENT
  Sex: Female
  Weight: 71.66 kg

DRUGS (1)
  1. NUVARING [Suspect]
     Indication: MENSTRUATION IRREGULAR
     Dosage: UNK
     Route: 067
     Dates: start: 201003, end: 201004

REACTIONS (23)
  - Chest pain [Not Recovered/Not Resolved]
  - Pulmonary embolism [Unknown]
  - Musculoskeletal pain [Unknown]
  - Arthroscopy [Unknown]
  - Chest pain [Unknown]
  - Hypokalaemia [Unknown]
  - Constipation [Unknown]
  - Uterine dilation and curettage [Unknown]
  - Hysteroscopy [Unknown]
  - Endometrial ablation [Unknown]
  - Migraine [Unknown]
  - Infection [Unknown]
  - Toothache [Unknown]
  - Gingival swelling [Unknown]
  - Off label use [Recovered/Resolved]
  - Dyspnoea [Unknown]
  - Back pain [Unknown]
  - Mental disorder [Unknown]
  - Periarthritis [Unknown]
  - Chest pain [Unknown]
  - Cough [Unknown]
  - Pulmonary infarction [Unknown]
  - Fatigue [Unknown]
